FAERS Safety Report 8226987-7 (Version None)
Quarter: 2012Q1

REPORT INFORMATION
  Report Type: 
  Country: None (occurrence: None)
  Receive Date: 20120322
  Receipt Date: 20120309
  Transmission Date: 20120608
  Serious: Yes (Life-Threatening, Hospitalization)
  Sender: FDA-Public Use
  Company Number: DE-JNJFOC-20120308969

PATIENT
  Age: 33 Year
  Sex: Male
  Weight: 94 kg

DRUGS (8)
  1. REMICADE [Suspect]
     Indication: PRODUCT USED FOR UNKNOWN INDICATION
     Route: 042
     Dates: start: 20111220
  2. REMICADE [Suspect]
     Route: 042
     Dates: start: 20111027
  3. DOXYCYCLINE [Concomitant]
     Indication: BRONCHITIS
     Route: 065
     Dates: start: 20120227
  4. REMICADE [Suspect]
     Route: 042
     Dates: start: 20101013
  5. REMICADE [Suspect]
     Route: 042
     Dates: start: 20101124
  6. REMICADE [Suspect]
     Route: 042
     Dates: start: 20120214
  7. REMICADE [Suspect]
     Route: 042
     Dates: start: 20101027
  8. VENLAFAXINE [Concomitant]
     Indication: ANXIETY DISORDER
     Route: 065
     Dates: start: 20100101

REACTIONS (5)
  - SINUS ARREST [None]
  - SYNCOPE [None]
  - SICK SINUS SYNDROME [None]
  - CONVULSION [None]
  - BRADYCARDIA [None]
